FAERS Safety Report 15762740 (Version 2)
Quarter: 2019Q1

REPORT INFORMATION
  Report Type: Spontaneous
  Country: PT (occurrence: PT)
  Receive Date: 20181226
  Receipt Date: 20190116
  Transmission Date: 20190417
  Serious: Yes (Other)
  Sender: FDA-Public Use
  Company Number: PHHY2018PT118797

PATIENT
  Age: 65 Year
  Sex: Female

DRUGS (4)
  1. SIMVASTATIN. [Suspect]
     Active Substance: SIMVASTATIN
     Indication: HYPERCHOLESTEROLAEMIA
     Dosage: 20 MG, QD
     Route: 048
  2. SIMVASTATIN. [Suspect]
     Active Substance: SIMVASTATIN
     Dosage: UNK
     Route: 065
  3. ROSUVASTATIN. [Suspect]
     Active Substance: ROSUVASTATIN
     Indication: HYPERCHOLESTEROLAEMIA
     Dosage: UNK
     Route: 065
  4. ROSUVASTATIN. [Suspect]
     Active Substance: ROSUVASTATIN
     Dosage: 10 MG, QD
     Route: 048

REACTIONS (6)
  - Pruritus [Recovered/Resolved]
  - Dermatitis psoriasiform [Recovered/Resolved]
  - Dermatitis bullous [Recovered/Resolved]
  - Skin exfoliation [Recovered/Resolved]
  - Rash erythematous [Recovered/Resolved]
  - Lichenoid keratosis [Recovered/Resolved]
